FAERS Safety Report 7565668-X (Version None)
Quarter: 2011Q2

REPORT INFORMATION
  Report Type: 
  Country: None (occurrence: None)
  Receive Date: 20110616
  Receipt Date: 20110208
  Transmission Date: 20111010
  Serious: Yes (Death, Hospitalization)
  Sender: FDA-Public Use
  Company Number: FK201100170

PATIENT
  Age: 59 Year
  Sex: Female

DRUGS (4)
  1. MELPHALAN HYDROCHLORIDE [Suspect]
     Indication: MANTLE CELL LYMPHOMA
     Dosage: 265 ON DAY -1, INTRAVENOUS, (NOT OTHERWISE SPECIFIED)
     Route: 042
  2. ETOPOSIDE INJECTION USP (ETOPOSIDE) (ETOPOSIDE) [Suspect]
     Indication: MANTLE CELL LYMPHOMA
     Dosage: 190 TWICE DAILY FOR 8 DOSES, INTRAVENOUS (NOT OTHERWISE SPECIFIED)
     Route: 042
  3. CARMUSTIN BCNU (CARMUSTIN BCNU) (CARMUSTIN BCNU) [Suspect]
     Indication: MANTLE CELL LYMPHOMA
     Dosage: 570 MG, ON DAY -6, INTRAVENOUS (NOT OTHERWISE SPECIFIED)
     Route: 042
  4. CYTARABINE [Suspect]
     Indication: MANTLE CELL LYMPHOMA
     Dosage: 190 MG, TWICE DAILY FOR 8 DOSES, INTRAVENOUS (NOT OTHERWISE SPECIFIED)
     Route: 042

REACTIONS (7)
  - PNEUMOTHORAX [None]
  - PULMONARY OEDEMA [None]
  - TACHYCARDIA [None]
  - DYSPNOEA [None]
  - THROMBOSIS IN DEVICE [None]
  - BRADYCARDIA [None]
  - CARDIAC ARREST [None]
